FAERS Safety Report 8270430-9 (Version None)
Quarter: 2012Q2

REPORT INFORMATION
  Report Type: 
  Country: None (occurrence: None)
  Receive Date: 20120410
  Receipt Date: 20120402
  Transmission Date: 20120825
  Serious: Yes (Hospitalization)
  Sender: FDA-Public Use
  Company Number: DE-SANOFI-AVENTIS-2012SA011888

PATIENT
  Age: 48 Year
  Sex: Female

DRUGS (4)
  1. HYDROXYCHLOROQUINE SULFATE [Suspect]
     Route: 048
     Dates: start: 20100101
  2. URSO FALK [Concomitant]
  3. PREDNISONE TAB [Concomitant]
     Dates: end: 20111201
  4. IBUPROFEN [Concomitant]

REACTIONS (2)
  - AMYLASE INCREASED [None]
  - LIPASE INCREASED [None]
